FAERS Safety Report 10073173 (Version 3)
Quarter: 2014Q2

REPORT INFORMATION
  Report Type: Report from Study
  Country: US (occurrence: US)
  Receive Date: 20140411
  Receipt Date: 20140423
  Transmission Date: 20141212
  Serious: Yes (Other)
  Sender: FDA-Public Use
  Company Number: US-ASTRAZENECA-2014SE12999

PATIENT
  Age: 60 Year
  Sex: Female
  Weight: 68 kg

DRUGS (13)
  1. SEROQUEL [Suspect]
     Indication: SLEEP DISORDER
     Route: 048
     Dates: start: 2006, end: 201401
  2. SEROQUEL [Suspect]
     Indication: SLEEP DISORDER
     Route: 048
     Dates: start: 2006, end: 201402
  3. SEROQUEL [Suspect]
     Indication: SLEEP DISORDER
     Route: 048
     Dates: start: 20140218
  4. SEROQUEL [Suspect]
     Indication: SLEEP DISORDER
     Route: 048
     Dates: start: 20140219
  5. SEROQUEL [Suspect]
     Indication: SLEEP DISORDER
     Dosage: TOOK 300 MG AND ADITIONAL 25 MG AT NIGHT
     Route: 048
     Dates: start: 20140219
  6. SEROQUEL [Suspect]
     Indication: SLEEP DISORDER
     Route: 048
     Dates: start: 20140321
  7. SEROQUEL [Suspect]
     Indication: SLEEP DISORDER
     Dosage: 300 MG, FROM CANADIAN PHARMACY (PLANET DRUGS)
     Route: 048
     Dates: start: 2014
  8. SEROQUEL [Suspect]
     Indication: SLEEP DISORDER
     Route: 048
  9. SEROQUEL [Suspect]
     Indication: SLEEP DISORDER
     Route: 048
  10. SEROQUEL [Suspect]
     Indication: SLEEP DISORDER
     Route: 048
     Dates: start: 20140219
  11. SEROQUEL [Suspect]
     Indication: SLEEP DISORDER
     Route: 048
     Dates: start: 2014
  12. SEROQUEL [Suspect]
     Indication: SLEEP DISORDER
     Dosage: GENERIC SEROQUEL
     Route: 048
  13. TRYPTOPHAN [Concomitant]
     Indication: SLEEP DISORDER
     Dosage: PRN

REACTIONS (29)
  - Overdose [Unknown]
  - Palpitations [Unknown]
  - Self-injurious ideation [Unknown]
  - Suicidal ideation [Unknown]
  - Hypoaesthesia [Unknown]
  - Apparent death [Unknown]
  - Presyncope [Unknown]
  - Malaise [Unknown]
  - Paraesthesia [Unknown]
  - Fatigue [Unknown]
  - Restless legs syndrome [Recovered/Resolved]
  - Hypertension [Unknown]
  - Insomnia [Unknown]
  - Paraesthesia [Unknown]
  - Agitation [Unknown]
  - Activities of daily living impaired [Unknown]
  - Frustration [Unknown]
  - Feeling abnormal [Unknown]
  - Panic attack [Unknown]
  - Anxiety [Unknown]
  - Mental disorder [Unknown]
  - Dyspnoea [Recovered/Resolved]
  - Therapeutic response changed [Unknown]
  - Intentional product misuse [Unknown]
  - Intentional product misuse [Unknown]
  - Off label use [Unknown]
  - Expired product administered [Unknown]
  - Drug dose omission [Unknown]
  - Drug ineffective for unapproved indication [Unknown]
